FAERS Safety Report 12232675 (Version 3)
Quarter: 2016Q3

REPORT INFORMATION
  Report Type: Report from Study
  Country: TR (occurrence: TR)
  Receive Date: 20160401
  Receipt Date: 20160805
  Transmission Date: 20161109
  Serious: Yes (Other)
  Sender: FDA-Public Use
  Company Number: TR-ABBVIE-16K-161-1593605-00

PATIENT
  Age: 30 Year
  Sex: Male
  Weight: 85 kg

DRUGS (1)
  1. HUMIRA [Suspect]
     Active Substance: ADALIMUMAB
     Indication: CROHN^S DISEASE
     Route: 058
     Dates: start: 20140701, end: 20160318

REACTIONS (1)
  - Bone cyst [Not Recovered/Not Resolved]

NARRATIVE: CASE EVENT DATE: 201507
